FAERS Safety Report 17113177 (Version 5)
Quarter: 2022Q3

REPORT INFORMATION
  Report Type: Spontaneous
  Country: US (occurrence: US)
  Receive Date: 20191204
  Receipt Date: 20220802
  Transmission Date: 20221026
  Serious: Yes (Hospitalization, Other)
  Sender: FDA-Public Use
  Company Number: US-TAKEDA-2019TUS069124

PATIENT
  Age: 74 Year
  Sex: Female
  Weight: 55.329 kg

DRUGS (2)
  1. NINLARO [Suspect]
     Active Substance: IXAZOMIB CITRATE
     Indication: Plasma cell myeloma
     Dosage: 3 MILLIGRAM
     Route: 048
     Dates: start: 20180828
  2. NINLARO [Suspect]
     Active Substance: IXAZOMIB CITRATE
     Dosage: 2.3 MILLIGRAM
     Route: 048
     Dates: start: 20190819

REACTIONS (13)
  - Hypotension [Unknown]
  - Dehydration [Unknown]
  - Loss of consciousness [Unknown]
  - Asthenia [Unknown]
  - Nausea [Unknown]
  - Neuropathy peripheral [Unknown]
  - Headache [Unknown]
  - Balance disorder [Unknown]
  - Vertigo [Unknown]
  - Weight decreased [Unknown]
  - Multiple allergies [Unknown]
  - Dizziness [Unknown]
  - Diarrhoea [Unknown]

NARRATIVE: CASE EVENT DATE: 20191202
